FAERS Safety Report 24394536 (Version 1)
Quarter: 2024Q4

REPORT INFORMATION
  Report Type: Spontaneous
  Country: GB (occurrence: GB)
  Receive Date: 20241004
  Receipt Date: 20241004
  Transmission Date: 20250115
  Serious: Yes (Other)
  Sender: ALKEM
  Company Number: GB-ALKEM LABORATORIES LIMITED-GB-ALKEM-2024-22242

PATIENT
  Age: 39 Year
  Sex: Male

DRUGS (1)
  1. PREGABALIN [Interacting]
     Active Substance: PREGABALIN
     Indication: Product used for unknown indication
     Dosage: 3000 MILLIGRAM, QD (HARD CAPSULES)
     Route: 048

REACTIONS (6)
  - Suicide attempt [Unknown]
  - Alcohol interaction [Unknown]
  - Nephropathy toxic [Unknown]
  - Drug abuse [Unknown]
  - Drug dependence [Unknown]
  - Product administered from unauthorised provider [Unknown]
